FAERS Safety Report 11075548 (Version 2)
Quarter: 2015Q2

REPORT INFORMATION
  Report Type: Spontaneous
  Country: US (occurrence: US)
  Receive Date: 20150429
  Receipt Date: 20150619
  Transmission Date: 20150821
  Serious: Yes (Other)
  Sender: FDA-Public Use
  Company Number: US-ASTRAZENECA-2015SE39178

PATIENT
  Age: 25323 Day
  Sex: Female
  Weight: 111.1 kg

DRUGS (18)
  1. HCTZ [Concomitant]
     Active Substance: HYDROCHLOROTHIAZIDE
  2. SYMBICORT [Suspect]
     Active Substance: BUDESONIDE\FORMOTEROL FUMARATE DIHYDRATE
     Indication: ASTHMA
     Dosage: 160/4.5 2 PUFFS, TWO TIMES A DAY
     Route: 055
  3. SYMBICORT [Suspect]
     Active Substance: BUDESONIDE\FORMOTEROL FUMARATE DIHYDRATE
     Indication: OBSTRUCTIVE AIRWAYS DISORDER
     Dosage: 160/4.5 2 PUFFS, TWO TIMES A DAY
     Route: 055
  4. ACYCLOVIR. [Concomitant]
     Active Substance: ACYCLOVIR
  5. LORAZEPAM. [Concomitant]
     Active Substance: LORAZEPAM
  6. ASA [Concomitant]
     Active Substance: ASPIRIN
  7. SYMBICORT [Suspect]
     Active Substance: BUDESONIDE\FORMOTEROL FUMARATE DIHYDRATE
     Indication: SARCOIDOSIS
     Dosage: 160/4.5 2 PUFFS, TWO TIMES A DAY
     Route: 055
     Dates: start: 20150401, end: 20150422
  8. LEVOTHYROXIN [Concomitant]
     Active Substance: LEVOTHYROXINE
  9. MAGNESIUM [Concomitant]
     Active Substance: MAGNESIUM
  10. MELATONIN [Concomitant]
     Active Substance: MELATONIN
  11. SYMBICORT [Suspect]
     Active Substance: BUDESONIDE\FORMOTEROL FUMARATE DIHYDRATE
     Indication: SARCOIDOSIS
     Dosage: 160/4.5 2 PUFFS, TWO TIMES A DAY
     Route: 055
  12. SYMBICORT [Suspect]
     Active Substance: BUDESONIDE\FORMOTEROL FUMARATE DIHYDRATE
     Indication: RENAL TRANSPLANT
     Dosage: 160/4.5 2 PUFFS, TWO TIMES A DAY
     Route: 055
  13. SYMBICORT [Suspect]
     Active Substance: BUDESONIDE\FORMOTEROL FUMARATE DIHYDRATE
     Indication: ASTHMA
     Dosage: 160/4.5 2 PUFFS, TWO TIMES A DAY
     Route: 055
     Dates: start: 20150401, end: 20150422
  14. SYMBICORT [Suspect]
     Active Substance: BUDESONIDE\FORMOTEROL FUMARATE DIHYDRATE
     Indication: RENAL TRANSPLANT
     Dosage: 160/4.5 2 PUFFS, TWO TIMES A DAY
     Route: 055
     Dates: start: 20150401, end: 20150422
  15. SYMBICORT [Suspect]
     Active Substance: BUDESONIDE\FORMOTEROL FUMARATE DIHYDRATE
     Indication: OBSTRUCTIVE AIRWAYS DISORDER
     Dosage: 160/4.5 2 PUFFS, TWO TIMES A DAY
     Route: 055
     Dates: start: 20150401, end: 20150422
  16. PRAVASTATIN [Concomitant]
     Active Substance: PRAVASTATIN\PRAVASTATIN SODIUM
  17. TACROLIMUS. [Concomitant]
     Active Substance: TACROLIMUS
  18. BETADIN [Concomitant]

REACTIONS (9)
  - Device issue [Unknown]
  - Oral discomfort [Unknown]
  - Off label use [Unknown]
  - Product taste abnormal [Unknown]
  - Throat irritation [Unknown]
  - Intentional product misuse [Unknown]
  - Dyspnoea [Unknown]
  - Back pain [Recovered/Resolved]
  - Candida infection [Unknown]

NARRATIVE: CASE EVENT DATE: 201504
